FAERS Safety Report 16950283 (Version 1)
Quarter: 2019Q4

REPORT INFORMATION
  Report Type: Spontaneous
  Country: US (occurrence: US)
  Receive Date: 20190902
  Receipt Date: 20190902
  Transmission Date: 20200122
  Serious: No
  Sender: FDA-Public Use
  Company Number: None

PATIENT
  Age: 57 Year
  Sex: Female

DRUGS (4)
  1. ADVIL [Concomitant]
     Active Substance: IBUPROFEN
  2. GLYCERIN SUPPOSITORY [Concomitant]
     Active Substance: GLYCERIN
  3. ODOMZO [Suspect]
     Active Substance: SONIDEGIB
     Indication: BASAL CELL CARCINOMA
     Route: 048
     Dates: start: 20190815
  4. GINGER. [Concomitant]
     Active Substance: GINGER

REACTIONS (1)
  - Constipation [None]

NARRATIVE: CASE EVENT DATE: 20190901
